FAERS Safety Report 11171827 (Version 2)
Quarter: 2015Q3

REPORT INFORMATION
  Report Type: Spontaneous
  Country: JP (occurrence: JP)
  Receive Date: 20150608
  Receipt Date: 20150706
  Transmission Date: 20151125
  Serious: Yes (Other)
  Sender: FDA-Public Use
  Company Number: JP-PFIZER INC-2015187161

PATIENT
  Age: 53 Year
  Sex: Male
  Weight: 67.3 kg

DRUGS (8)
  1. SPIRONOLACTONE. [Concomitant]
     Active Substance: SPIRONOLACTONE
     Dosage: 25 MG, 1X/DAY
     Route: 048
     Dates: start: 20150525
  2. TALION /01587402/ [Concomitant]
     Active Substance: BEPOTASTINE
     Dosage: 10 MG, 2X/DAY
     Route: 048
     Dates: start: 20120621
  3. TAGAMET [Concomitant]
     Active Substance: CIMETIDINE
     Dosage: 200 MG, 2X/DAY
     Route: 048
     Dates: start: 20110704
  4. INLYTA [Suspect]
     Active Substance: AXITINIB
     Dosage: UNK
     Route: 048
     Dates: start: 20150622
  5. FUROSEMIDE. [Concomitant]
     Active Substance: FUROSEMIDE
     Dosage: 20 MG, 1X/DAY
     Route: 048
     Dates: start: 20141210
  6. INLYTA [Suspect]
     Active Substance: AXITINIB
     Dosage: 3 MG, 2X/DAY
     Route: 048
     Dates: start: 20150413, end: 20150614
  7. ZETIA [Concomitant]
     Active Substance: EZETIMIBE
     Dosage: 10 MG, 1X/DAY
     Route: 048
     Dates: start: 20140224
  8. DECADRON [Concomitant]
     Active Substance: DEXAMETHASONE
     Dosage: 2 MG, 1X/DAY
     Route: 048
     Dates: start: 20141210

REACTIONS (2)
  - Necrolytic migratory erythema [Recovering/Resolving]
  - Skin exfoliation [Not Recovered/Not Resolved]

NARRATIVE: CASE EVENT DATE: 20150601
